FAERS Safety Report 19761309 (Version 1)
Quarter: 2021Q3

REPORT INFORMATION
  Report Type: Spontaneous
  Country: JP (occurrence: JP)
  Receive Date: 20210827
  Receipt Date: 20210827
  Transmission Date: 20211014
  Serious: Yes (Death)
  Sender: FDA-Public Use
  Company Number: JP-JNJFOC-20210844211

PATIENT
  Age: 77 Year
  Sex: Female

DRUGS (11)
  1. TRACLEER [Suspect]
     Active Substance: BOSENTAN
     Indication: SKIN ULCER
     Dosage: IN THE MORNING AND EVENING
     Route: 048
     Dates: start: 20150824, end: 20151013
  2. MEDROL [Concomitant]
     Active Substance: METHYLPREDNISOLONE
     Indication: SYSTEMIC SCLERODERMA
     Route: 048
     Dates: start: 200203, end: 20170425
  3. TRACLEER [Suspect]
     Active Substance: BOSENTAN
     Dosage: 62.5MG IN THE MORNING, 125MG IN THE EVENING
     Route: 048
     Dates: start: 20151014, end: 20160607
  4. UNASYN [Concomitant]
     Active Substance: AMPICILLIN SODIUM\SULBACTAM SODIUM
     Route: 042
     Dates: start: 20160624, end: 20160625
  5. UNASYN [Concomitant]
     Active Substance: AMPICILLIN SODIUM\SULBACTAM SODIUM
     Route: 042
     Dates: start: 20160706, end: 20160708
  6. OZEX [Concomitant]
     Indication: SKIN INFECTION
     Route: 048
     Dates: start: 20160608, end: 20160621
  7. TRACLEER [Suspect]
     Active Substance: BOSENTAN
     Dosage: IN THE MORNING AND EVENING
     Route: 048
     Dates: start: 20160608, end: 20210526
  8. BAKTAR [Concomitant]
     Active Substance: SULFAMETHOXAZOLE\TRIMETHOPRIM
     Indication: INFECTION PROPHYLAXIS
     Route: 048
     Dates: start: 20160706, end: 20210526
  9. MEDROL [Concomitant]
     Active Substance: METHYLPREDNISOLONE
     Route: 048
     Dates: start: 20170426, end: 20170801
  10. MEDROL [Concomitant]
     Active Substance: METHYLPREDNISOLONE
     Route: 048
     Dates: start: 20170802, end: 20191211
  11. UNASYN [Concomitant]
     Active Substance: AMPICILLIN SODIUM\SULBACTAM SODIUM
     Indication: SKIN INFECTION
     Route: 042
     Dates: start: 20160608, end: 20160615

REACTIONS (1)
  - Pneumonia [Fatal]
